FAERS Safety Report 6154634-7 (Version None)
Quarter: 2009Q2

REPORT INFORMATION
  Report Type: 
  Country: None (occurrence: None)
  Receive Date: 20090414
  Receipt Date: 20090407
  Transmission Date: 20091009
  Serious: Yes (Hospitalization)
  Sender: FDA-Public Use
  Company Number: US-ELI_LILLY_AND_COMPANY-US200904001458

PATIENT
  Sex: Male
  Weight: 86.168 kg

DRUGS (17)
  1. BYETTA [Suspect]
     Indication: TYPE 2 DIABETES MELLITUS
     Dosage: 5 UG, 2/D
     Route: 058
     Dates: start: 20090201, end: 20090201
  2. BYETTA [Suspect]
     Dosage: 10 UG, 2/D
     Route: 058
     Dates: start: 20090201
  3. METFORMIN HCL [Concomitant]
     Indication: TYPE 2 DIABETES MELLITUS
     Dosage: UNK, OTHER
     Dates: start: 20090201, end: 20090402
  4. METFORMIN HCL [Concomitant]
     Dosage: UNK, OTHER
     Dates: start: 20090406
  5. GLIMEPIRIDE [Concomitant]
     Indication: TYPE 2 DIABETES MELLITUS
     Dosage: 2 MG, 2/D
  6. ATENOLOL [Concomitant]
     Indication: CARDIAC DISORDER
     Dosage: 25 MG, DAILY (1/D)
     Route: 048
  7. ATENOLOL [Concomitant]
     Dosage: 25 MG, EACH MORNING
     Route: 048
     Dates: start: 20090406
  8. ATENOLOL [Concomitant]
     Dosage: 12.5 MG, EACH EVENING
     Route: 048
     Dates: start: 20090406
  9. LISINOPRIL [Concomitant]
     Dosage: 40 MG, DAILY (1/D)
     Route: 048
  10. AMLODIPINE BESYLATE [Concomitant]
     Dosage: 5 MG, DAILY (1/D)
     Route: 048
  11. COZAAR [Concomitant]
     Dosage: 50 MG, DAILY (1/D)
     Route: 048
  12. SIMVASTATIN [Concomitant]
     Dosage: 80 MG, DAILY (1/D)
     Route: 048
  13. VITAMIN D [Concomitant]
     Dosage: 1000 IU, DAILY (1/D)
     Route: 048
  14. ASPIRIN [Concomitant]
     Dosage: UNK, OTHER
     Route: 048
  15. CILOSTAZOL [Concomitant]
     Dosage: 100 MG, 2/D
     Route: 048
  16. FISH OIL [Concomitant]
     Dosage: UNK, 2/D
     Route: 048
  17. HYDROCHLOROTHIAZIDE [Concomitant]
     Dosage: 12.5 MG, QOD
     Route: 048

REACTIONS (5)
  - DIZZINESS [None]
  - HEART RATE DECREASED [None]
  - HEART RATE INCREASED [None]
  - INFLUENZA LIKE ILLNESS [None]
  - WEIGHT DECREASED [None]
